FAERS Safety Report 10902962 (Version 1)
Quarter: 2015Q1

REPORT INFORMATION
  Report Type: Spontaneous
  Country: CH (occurrence: CH)
  Receive Date: 20150310
  Receipt Date: 20150310
  Transmission Date: 20150721
  Serious: Yes (Hospitalization)
  Sender: FDA-Public Use
  Company Number: CH-ELI_LILLY_AND_COMPANY-CH201502009422

PATIENT
  Age: 92 Year
  Sex: Male

DRUGS (6)
  1. ZYPREXA [Suspect]
     Active Substance: OLANZAPINE
     Indication: DEPRESSION
     Dosage: 2.5 MG, QD
     Route: 048
     Dates: start: 20150122, end: 20150205
  2. SERTRALINE [Suspect]
     Active Substance: SERTRALINE HYDROCHLORIDE
     Dosage: 50 MG, QD
     Route: 048
     Dates: start: 20150128
  3. SERTRALINE [Suspect]
     Active Substance: SERTRALINE HYDROCHLORIDE
     Indication: DEPRESSION
     Dosage: 25 MG, QD
     Route: 048
     Dates: start: 20150122, end: 20150127
  4. ZYPREXA [Suspect]
     Active Substance: OLANZAPINE
     Dosage: 5 MG, QD
     Route: 048
     Dates: start: 20150206, end: 20150211
  5. TARDYFERON [Concomitant]
     Active Substance: FERROUS SULFATE\FOLIC ACID
     Dosage: 80 MG, QD
     Route: 065
     Dates: start: 201406
  6. ACIDUM FOLICUM STREULI [Concomitant]
     Dosage: 5 MG, QD
     Route: 065
     Dates: start: 201406

REACTIONS (6)
  - Hallucination, visual [Recovered/Resolved]
  - Mood swings [Recovered/Resolved]
  - Delirium [Recovered/Resolved]
  - Hypertension [Unknown]
  - Aphasia [Recovered/Resolved]
  - Restlessness [Recovered/Resolved]

NARRATIVE: CASE EVENT DATE: 20150208
